FAERS Safety Report 10669445 (Version 1)
Quarter: 2014Q4

REPORT INFORMATION
  Report Type: Spontaneous
  Country: US (occurrence: US)
  Receive Date: 20141222
  Receipt Date: 20141222
  Transmission Date: 20150529
  Serious: No
  Sender: FDA-Public Use
  Company Number: US-SA-2014SA142529

PATIENT
  Age: 22 Year
  Sex: Female

DRUGS (4)
  1. AUBAGIO [Suspect]
     Active Substance: TERIFLUNOMIDE
     Route: 065
     Dates: start: 20141001
  2. FOLIC ACID. [Concomitant]
     Active Substance: FOLIC ACID
  3. BACLOFEN. [Concomitant]
     Active Substance: BACLOFEN
  4. AUBAGIO [Suspect]
     Active Substance: TERIFLUNOMIDE
     Dosage: STRENGTH: 14 MG
     Route: 065
     Dates: end: 201411

REACTIONS (4)
  - Hypoaesthesia [Not Recovered/Not Resolved]
  - Eye disorder [Unknown]
  - Limb discomfort [Unknown]
  - Pain in extremity [Not Recovered/Not Resolved]

NARRATIVE: CASE EVENT DATE: 201410
